FAERS Safety Report 5075221-8 (Version None)
Quarter: 2006Q3

REPORT INFORMATION
  Report Type: 
  Country: None (occurrence: None)
  Receive Date: 20060807
  Receipt Date: 20060807
  Transmission Date: 20061208
  Serious: Yes (Hospitalization)
  Sender: FDA-Public Use
  Company Number: None

PATIENT
  Sex: Female
  Weight: 95 kg

DRUGS (6)
  1. MYFORTIC [Suspect]
     Indication: PROPHYLAXIS AGAINST TRANSPLANT REJECTION
     Dosage: 720MG PO BID
     Route: 048
     Dates: start: 20060602
  2. MYFORTIC [Suspect]
     Indication: RENAL TRANSPLANT
     Dosage: 720MG PO BID
     Route: 048
     Dates: start: 20060602
  3. MYFORTIC [Suspect]
  4. THYMOGLOBULIN [Concomitant]
  5. CORTICOSTEROIDS [Concomitant]
  6. TACROLIMUS [Concomitant]

REACTIONS (4)
  - COMPLICATIONS OF TRANSPLANTED KIDNEY [None]
  - HAEMODIALYSIS [None]
  - KIDNEY TRANSPLANT REJECTION [None]
  - THERAPEUTIC RESPONSE DECREASED [None]
